FAERS Safety Report 4495853-5 (Version None)
Quarter: 2004Q4

REPORT INFORMATION
  Report Type: 
  Country: None (occurrence: None)
  Receive Date: 20041108
  Receipt Date: 20041102
  Transmission Date: 20050328
  Serious: Yes (Hospitalization)
  Sender: FDA-Public Use
  Company Number: 2004JP001901

PATIENT
  Age: 48 Year
  Sex: Female

DRUGS (5)
  1. SAWACILLIN [Suspect]
     Indication: UPPER RESPIRATORY TRACT INFLAMMATION
     Dosage: 750MG PER DAY
     Route: 048
     Dates: start: 20040922, end: 20040924
  2. NIPOLAZIN [Concomitant]
  3. MARZULENE [Concomitant]
  4. ASTOMIN [Concomitant]
  5. BISOLVON [Concomitant]

REACTIONS (1)
  - LIVER DISORDER [None]
